FAERS Safety Report 14527634 (Version 1)
Quarter: 2018Q1

REPORT INFORMATION
  Report Type: Spontaneous
  Country: FR (occurrence: FR)
  Receive Date: 20180213
  Receipt Date: 20180213
  Transmission Date: 20180509
  Serious: Yes (Hospitalization)
  Sender: FDA-Public Use
  Company Number: FR-OTSUKA-2017_021780

PATIENT
  Age: 26 Year
  Sex: Male

DRUGS (1)
  1. ABILIFY [Suspect]
     Active Substance: ARIPIPRAZOLE
     Indication: PSYCHOTIC DISORDER
     Dosage: 30 MG, QD
     Route: 048

REACTIONS (6)
  - Disease recurrence [Unknown]
  - Aggression [Unknown]
  - Product use in unapproved indication [Unknown]
  - Impulsive behaviour [Unknown]
  - Drug ineffective [Unknown]
  - Psychopathic personality [Unknown]
